FAERS Safety Report 5133774-5 (Version None)
Quarter: 2006Q4

REPORT INFORMATION
  Report Type: 
  Country: None (occurrence: None)
  Receive Date: 20061018
  Receipt Date: 20061009
  Transmission Date: 20070319
  Serious: Yes (Other)
  Sender: FDA-Public Use
  Company Number: 2006116721

PATIENT
  Age: 26 Year
  Sex: Male
  Weight: 60 kg

DRUGS (3)
  1. FRAGMIN [Suspect]
     Indication: THROMBOSIS PROPHYLAXIS
     Dosage: 5000 I.U. (5000 I.U., 1 IN 1 D), SUBCUTANEOUS
     Route: 058
     Dates: start: 20060901, end: 20060920
  2. VORICONAZOLE (VORICONAZOLE) [Suspect]
     Indication: ANTIFUNGAL PROPHYLAXIS
     Dates: start: 20060901, end: 20060920
  3. DRUGS FOR TREATMENT OF TUBERCULOSIS (DRUGS FOR TREATMENT OF TUBERCULOS [Concomitant]

REACTIONS (2)
  - DECUBITUS ULCER [None]
  - GANGRENE [None]
